FAERS Safety Report 14500082 (Version 1)
Quarter: 2018Q1

REPORT INFORMATION
  Report Type: Not Available
  Country: US (occurrence: US)
  Receive Date: 20180207
  Receipt Date: 20180207
  Transmission Date: 20180509
  Serious: No
  Sender: FDA-Public Use
  Company Number: US-FOUNDATIONCONSUMERHC-2017-US-014181

PATIENT
  Age: 19 Year
  Sex: Female
  Weight: 61.69 kg

DRUGS (1)
  1. PLAN B ONE-STEP [Suspect]
     Active Substance: LEVONORGESTREL
     Dosage: 1.5 MG X 1 DOSE
     Route: 048
     Dates: start: 20171018, end: 20171018

REACTIONS (4)
  - Breast tenderness [Not Recovered/Not Resolved]
  - Nausea [Not Recovered/Not Resolved]
  - Vaginal haemorrhage [Recovered/Resolved]
  - Nipple disorder [Not Recovered/Not Resolved]

NARRATIVE: CASE EVENT DATE: 20171024
